FAERS Safety Report 5471707-2 (Version None)
Quarter: 2007Q3

REPORT INFORMATION
  Report Type: 
  Country: None (occurrence: None)
  Receive Date: 20070928
  Receipt Date: 20070411
  Transmission Date: 20080115
  Serious: No
  Sender: FDA-Public Use
  Company Number: US-BRISTOL-MYERS SQUIBB COMPANY-13745013

PATIENT
  Age: 58 Year
  Sex: Female
  Weight: 143 kg

DRUGS (7)
  1. DEFINITY [Suspect]
     Indication: ECHOCARDIOGRAM
     Dates: start: 20070411
  2. KLONOPIN [Concomitant]
  3. ALBUTEROL [Concomitant]
  4. CATAPRES [Concomitant]
  5. TOPROL-XL [Concomitant]
  6. NIFEDIPINE [Concomitant]
  7. LASIX [Concomitant]

REACTIONS (4)
  - CHEST DISCOMFORT [None]
  - DIZZINESS [None]
  - DYSPNOEA [None]
  - ERYTHEMA [None]
